FAERS Safety Report 9677640 (Version 1)
Quarter: 2013Q4

REPORT INFORMATION
  Report Type: Spontaneous
  Country: NL (occurrence: NL)
  Receive Date: 20131108
  Receipt Date: 20131108
  Transmission Date: 20140711
  Serious: Yes (Other)
  Sender: FDA-Public Use
  Company Number: NL-JNJFOC-20131102652

PATIENT
  Sex: Female

DRUGS (2)
  1. RISPERIDONE [Suspect]
     Indication: SCHIZOPHRENIA
     Route: 048
     Dates: start: 2009
  2. DIAZEPAM [Concomitant]
     Route: 048
     Dates: start: 2010

REACTIONS (2)
  - Gestational diabetes [Unknown]
  - Exposure during pregnancy [Recovered/Resolved]
